FAERS Safety Report 7368546-4 (Version None)
Quarter: 2011Q1

REPORT INFORMATION
  Report Type: 
  Country: None (occurrence: None)
  Receive Date: 20110323
  Receipt Date: 20110311
  Transmission Date: 20110831
  Serious: Yes (Other)
  Sender: FDA-Public Use
  Company Number: US-JNJFOC-20110307880

PATIENT
  Sex: Female

DRUGS (2)
  1. MANY OTHER UNSPECIFIED MEDICATIONS [Concomitant]
     Indication: HYPERTENSION
     Route: 065
  2. FENTANYL-100 [Suspect]
     Indication: ARTHRITIS
     Route: 062

REACTIONS (6)
  - OEDEMA PERIPHERAL [None]
  - DYSGRAPHIA [None]
  - TREATMENT NONCOMPLIANCE [None]
  - LOSS OF CONTROL OF LEGS [None]
  - GAIT DISTURBANCE [None]
  - HYPERSENSITIVITY [None]
